FAERS Safety Report 5603357-9 (Version None)
Quarter: 2008Q1

REPORT INFORMATION
  Report Type: 
  Country: None (occurrence: None)
  Receive Date: 20080122
  Receipt Date: 20080111
  Transmission Date: 20080703
  Serious: Yes (Other)
  Sender: FDA-Public Use
  Company Number: GXKR2008GB00780

PATIENT
  Age: 70 Year
  Sex: Male

DRUGS (1)
  1. WARFARIN SODIUM [Suspect]

REACTIONS (1)
  - NEPHRITIS INTERSTITIAL [None]
